FAERS Safety Report 12487518 (Version 1)
Quarter: 2016Q2

REPORT INFORMATION
  Report Type: Spontaneous
  Country: GB (occurrence: GB)
  Receive Date: 20160622
  Receipt Date: 20160622
  Transmission Date: 20160815
  Serious: Yes (Life-Threatening, Hospitalization)
  Sender: FDA-Public Use
  Company Number: GB-ACCORD-041575

PATIENT
  Age: 4 Year
  Sex: Female
  Weight: 18 kg

DRUGS (15)
  1. CISPLATIN. [Suspect]
     Active Substance: CISPLATIN
     Indication: CHEMOTHERAPY
     Dosage: CUMULATIVE DOSE 570 MG/M2
     Dates: start: 201401, end: 201407
  2. GRANULOCYTE COLONY STIMULATING [Concomitant]
     Active Substance: GRANULOCYTE COLONY-STIMULATING FACTOR NOS
  3. MYCOPHENOLIC ACID. [Concomitant]
     Active Substance: MYCOPHENOLIC ACID
     Dosage: STOPPED
     Dates: end: 20160422
  4. DOXORUBICIN [Suspect]
     Active Substance: DOXORUBICIN
     Indication: CHEMOTHERAPY
     Dosage: CUMULATIVE DOSE 330 MG/M2
     Dates: start: 201401, end: 201407
  5. NYSTATIN/NYSTATIN/LIPOSOME [Concomitant]
  6. PIPERACILLIN/TAZOBACTAM [Concomitant]
  7. PARACETAMOL [Concomitant]
     Active Substance: ACETAMINOPHEN
  8. CHLORPHENAMINE/CHLORPHENAMINE MALEATE/CHLORPHENAMINE RESINATE/CHLORPHENAMINE TANNATE [Concomitant]
  9. SALBUTAMOL [Concomitant]
     Active Substance: ALBUTEROL
  10. TACROLIMUS. [Concomitant]
     Active Substance: TACROLIMUS
     Dosage: TACROLIMUS MONOHYDRATE
  11. CARBOPLATIN. [Suspect]
     Active Substance: CARBOPLATIN
     Indication: CHEMOTHERAPY
     Dosage: CUMULATIVE DOSE 1776 MG/M2 DOSED ON GFR 10.6 MG/ML.MIN
     Dates: start: 201401, end: 201407
  12. AMOXICILLIN. [Concomitant]
     Active Substance: AMOXICILLIN
  13. CHLORAMPHENICOL [Concomitant]
     Active Substance: CHLORAMPHENICOL
  14. HYDROCORTISONE. [Concomitant]
     Active Substance: HYDROCORTISONE
  15. MIDAZOLAM [Concomitant]
     Active Substance: MIDAZOLAM\MIDAZOLAM HYDROCHLORIDE

REACTIONS (4)
  - Respiratory tract infection [Recovered/Resolved]
  - Acute myeloid leukaemia [Not Recovered/Not Resolved]
  - Neutropenia [Unknown]
  - Malaise [Recovered/Resolved]

NARRATIVE: CASE EVENT DATE: 201603
